FAERS Safety Report 5271420-0 (Version None)
Quarter: 2007Q1

REPORT INFORMATION
  Report Type: 
  Country: None (occurrence: None)
  Receive Date: 20070321
  Receipt Date: 20070319
  Transmission Date: 20070707
  Serious: Yes (Life-Threatening, Hospitalization)
  Sender: FDA-Public Use
  Company Number: CA-BRISTOL-MYERS SQUIBB COMPANY-13709118

PATIENT
  Age: 65 Year
  Sex: Male
  Weight: 68 kg

DRUGS (8)
  1. CISPLATIN [Suspect]
     Indication: OESOPHAGEAL CARCINOMA
     Route: 042
     Dates: start: 20070116, end: 20070116
  2. IRINOTECAN HCL [Suspect]
     Indication: OESOPHAGEAL CARCINOMA
     Route: 042
     Dates: start: 20070116, end: 20070116
  3. BUSCOPAN [Suspect]
     Route: 048
     Dates: start: 20070123, end: 20070124
  4. LOPERAMIDE HCL [Suspect]
     Route: 048
     Dates: start: 20070123, end: 20070124
  5. PHENAPHEN + CODEINE NO. 3 [Suspect]
     Route: 048
     Dates: start: 20070123, end: 20070124
  6. KYTRIL [Concomitant]
     Route: 048
     Dates: start: 20070110
  7. DECADRON [Concomitant]
     Route: 048
     Dates: start: 20070110
  8. ALTACE [Concomitant]

REACTIONS (5)
  - ATRIAL FIBRILLATION [None]
  - CHRONIC OBSTRUCTIVE PULMONARY DISEASE [None]
  - FEBRILE NEUTROPENIA [None]
  - ILEUS [None]
  - VENTRICULAR TACHYCARDIA [None]
